FAERS Safety Report 7989778-8 (Version None)
Quarter: 2011Q4

REPORT INFORMATION
  Report Type: 
  Country: None (occurrence: None)
  Receive Date: 20111219
  Receipt Date: 20110711
  Transmission Date: 20120403
  Serious: No
  Sender: FDA-Public Use
  Company Number: US-ASTRAZENECA-2011SE41464

PATIENT
  Age: 57 Year
  Sex: Male

DRUGS (2)
  1. SYNTHROID [Concomitant]
  2. CRESTOR [Suspect]
     Dosage: 1/4 OF A 10 MG TABLET, EVERY OTHER DAY
     Route: 048

REACTIONS (2)
  - WRONG TECHNIQUE IN DRUG USAGE PROCESS [None]
  - NECK PAIN [None]
